FAERS Safety Report 16015828 (Version 1)
Quarter: 2019Q1

REPORT INFORMATION
  Report Type: Spontaneous
  Country: IL (occurrence: IL)
  Receive Date: 20190228
  Receipt Date: 20190228
  Transmission Date: 20190418
  Serious: Yes (Other)
  Sender: FDA-Public Use
  Company Number: IL-TEVA-2019-IL-1016189

PATIENT
  Age: 95 Year
  Sex: Female

DRUGS (8)
  1. PLAVIX [Concomitant]
     Active Substance: CLOPIDOGREL BISULFATE
  2. EUTHYROX [Concomitant]
     Active Substance: LEVOTHYROXINE SODIUM
  3. AVILAC SOL 670 MG /1ML [Concomitant]
     Active Substance: GALACTOSE\LACTOSE\LACTULOSE
  4. CALCICHEW D3 FORTE LEMON CHEW [Concomitant]
     Active Substance: CALCIUM\CHOLECALCIFEROL
  5. FUSID (FUROSEMIDE) [Suspect]
     Active Substance: FUROSEMIDE
     Dosage: FUSID
  6. ATENOLOL TAB 50 MG [Concomitant]
     Active Substance: ATENOLOL
  7. DIOVAN [Concomitant]
     Active Substance: VALSARTAN
  8. METHOTREXATE. [Suspect]
     Active Substance: METHOTREXATE
     Dosage: 29/M TAB 2.5 MG

REACTIONS (2)
  - Renal failure [Unknown]
  - Pancytopenia [Unknown]
